FAERS Safety Report 9289153 (Version 1)
Quarter: 2013Q2

REPORT INFORMATION
  Report Type: Spontaneous
  Country: US (occurrence: US)
  Receive Date: 20130514
  Receipt Date: 20130514
  Transmission Date: 20140414
  Serious: Yes (Other)
  Sender: FDA-Public Use
  Company Number: US-TEVA-404662USA

PATIENT
  Sex: Male

DRUGS (2)
  1. CLOZAPINE [Suspect]
     Route: 048
  2. ZOLOFT [Concomitant]

REACTIONS (2)
  - Drug level increased [Recovered/Resolved]
  - Palpitations [Recovered/Resolved]
